FAERS Safety Report 6219557-3 (Version None)
Quarter: 2009Q2

REPORT INFORMATION
  Report Type: 
  Country: None (occurrence: None)
  Receive Date: 20090605
  Receipt Date: 20090526
  Transmission Date: 20091009
  Serious: Yes (Hospitalization)
  Sender: FDA-Public Use
  Company Number: 2009SP001352

PATIENT
  Age: 62 Year
  Sex: Male

DRUGS (13)
  1. XOPENEX [Suspect]
     Indication: PULMONARY CONGESTION
     Dosage: 0.63 MG/3ML; QD; INHALATION
     Route: 055
     Dates: start: 20090414, end: 20090520
  2. XOPENEX [Suspect]
     Indication: SINUS CONGESTION
     Dosage: 0.63 MG/3ML; QD; INHALATION
     Route: 055
     Dates: start: 20090414, end: 20090520
  3. BENADRYL [Suspect]
     Dates: start: 20090501, end: 20090501
  4. IPRATROPIUM BROMIDE [Suspect]
  5. KEPPRA [Concomitant]
  6. ATIVAN [Concomitant]
  7. VALTREX [Concomitant]
  8. SYNTHROID [Concomitant]
  9. ZANTAC [Concomitant]
  10. POTASSIUM CHLORIDE [Concomitant]
  11. LASIX [Concomitant]
  12. LEVAQUIN [Concomitant]
  13. CHEMOTHERAPEUTICS NOS [Concomitant]

REACTIONS (11)
  - BLOOD PRESSURE INCREASED [None]
  - CHEILITIS [None]
  - DIZZINESS [None]
  - DRY MOUTH [None]
  - GASTROINTESTINAL DISORDER [None]
  - INCORRECT ROUTE OF DRUG ADMINISTRATION [None]
  - LIP DRY [None]
  - MOUTH INJURY [None]
  - OROPHARYNGEAL SWELLING [None]
  - STOMATITIS [None]
  - THROAT TIGHTNESS [None]
